FAERS Safety Report 12243990 (Version 1)
Quarter: 2016Q2

REPORT INFORMATION
  Report Type: Spontaneous
  Country: US (occurrence: US)
  Receive Date: 20160406
  Receipt Date: 20160406
  Transmission Date: 20160815
  Serious: No
  Sender: FDA-Public Use
  Company Number: US-GREER LABORATORIES, INC.-1050311

PATIENT
  Age: 9 Year
  Sex: Male
  Weight: 35.46 kg

DRUGS (7)
  1. POLLENS - WEEDS, WEED MIX 2630 [Suspect]
     Active Substance: AMARANTHUS RETROFLEXUS POLLEN\CHENOPODIUM ALBUM POLLEN\RUMEX ACETOSELLA POLLEN\RUMEX CRISPUS POLLEN\XANTHIUM STRUMARIUM POLLEN
     Route: 058
     Dates: start: 20131111
  2. MOLDS - MOLD MIX 3 [Suspect]
     Active Substance: ALTERNARIA ALTERNATA\CLADOSPORIUM SPHAEROSPERMUM\COCHLIOBOLUS SATIVUS
     Route: 058
     Dates: start: 20131111
  3. MIXTURE OF FOUR STANDARDIZED GRASSES [Suspect]
     Active Substance: AGROSTIS GIGANTEA POLLEN\DACTYLIS GLOMERATA POLLEN\PHLEUM PRATENSE POLLEN\POA PRATENSIS POLLEN
     Route: 058
     Dates: start: 20131111
  4. GS EASTERN 8 TREE MIX [Suspect]
     Active Substance: ALLERGENIC EXTRACT- 8 TREE MIX
     Route: 058
     Dates: start: 20131111
  5. STANDARDIZED CAT HAIR [Suspect]
     Active Substance: FELIS CATUS HAIR
     Indication: HYPERSENSITIVITY
     Route: 058
     Dates: start: 20131111
  6. POLLENS - WEEDS AND GARDEN PLANTS, RAGWEED, MIXED AMBROSIA [Suspect]
     Active Substance: AMBROSIA ARTEMISIIFOLIA POLLEN\AMBROSIA TRIFIDA POLLEN
     Route: 058
     Dates: start: 20131111
  7. DOG EPITHELIUM [Suspect]
     Active Substance: CANIS LUPUS FAMILIARIS SKIN
     Route: 058
     Dates: start: 20131111

REACTIONS (1)
  - Injection site pain [Not Recovered/Not Resolved]

NARRATIVE: CASE EVENT DATE: 20131111
